FAERS Safety Report 13579121 (Version 3)
Quarter: 2017Q3

REPORT INFORMATION
  Report Type: Report from Study
  Country: CA (occurrence: CA)
  Receive Date: 20170524
  Receipt Date: 20170904
  Transmission Date: 20171127
  Serious: Yes (Other)
  Sender: FDA-Public Use
  Company Number: CA-AMGEN-CANSL2017077994

PATIENT
  Age: 56 Year
  Sex: Male

DRUGS (1)
  1. VECTIBIX [Suspect]
     Active Substance: PANITUMUMAB
     Indication: PRODUCT USED FOR UNKNOWN INDICATION
     Dosage: 100MG/ 5 ML UNK
     Route: 065
     Dates: start: 20151019

REACTIONS (2)
  - Drug dose omission [Unknown]
  - Haemorrhage [Unknown]

NARRATIVE: CASE EVENT DATE: 20151203
